FAERS Safety Report 19397096 (Version 6)
Quarter: 2021Q3

REPORT INFORMATION
  Report Type: Spontaneous
  Country: US (occurrence: US)
  Receive Date: 20210609
  Receipt Date: 20210716
  Transmission Date: 20211014
  Serious: No
  Sender: FDA-Public Use
  Company Number: US-TEVA-2021-US-1918821

PATIENT
  Age: 84 Year
  Sex: Male

DRUGS (1)
  1. TESTOSTERONE TEVA [Suspect]
     Active Substance: TESTOSTERONE
     Indication: PROSTATE CANCER
     Route: 061
     Dates: start: 20210524

REACTIONS (10)
  - Product dispensing error [Unknown]
  - Therapy non-responder [Unknown]
  - Breast swelling [Unknown]
  - Swelling [Unknown]
  - Laboratory test abnormal [Unknown]
  - Weight decreased [Unknown]
  - Hypertrichosis [Unknown]
  - Contraindicated product administered [Unknown]
  - Prostatic specific antigen increased [Not Recovered/Not Resolved]
  - Anxiety [Unknown]

NARRATIVE: CASE EVENT DATE: 2021
